FAERS Safety Report 10757307 (Version 1)
Quarter: 2015Q1

REPORT INFORMATION
  Report Type: Spontaneous
  Country: US (occurrence: None)
  Receive Date: 20150130
  Receipt Date: 20150130
  Transmission Date: 20150721
  Serious: Yes (Life-Threatening)
  Sender: FDA-Public Use
  Company Number: M-15-002

PATIENT
  Age: 68 Year
  Sex: Male

DRUGS (3)
  1. NIACIN. [Concomitant]
     Active Substance: NIACIN
  2. FISH OIL [Concomitant]
     Active Substance: FISH OIL
  3. LEVOTHYROXINE SODIUM. [Suspect]
     Active Substance: LEVOTHYROXINE SODIUM
     Indication: HYPOTHYROIDISM
     Dates: start: 201401, end: 20150112

REACTIONS (10)
  - Headache [None]
  - Back pain [None]
  - Thyroid function test abnormal [None]
  - Feeling abnormal [None]
  - Cough [None]
  - Insomnia [None]
  - Aggression [None]
  - Musculoskeletal pain [None]
  - Suicidal ideation [None]
  - Depressed mood [None]

NARRATIVE: CASE EVENT DATE: 201401
